FAERS Safety Report 6736553-8 (Version None)
Quarter: 2010Q2

REPORT INFORMATION
  Report Type: 
  Country: None (occurrence: None)
  Receive Date: 20100521
  Receipt Date: 20100513
  Transmission Date: 20101027
  Serious: Yes (Other)
  Sender: FDA-Public Use
  Company Number: DE-PERRIGO-10DE009638

PATIENT
  Age: 31 Year
  Sex: Male

DRUGS (5)
  1. RANITIDINE HYDROCHLORIDE 75 MG 156 [Suspect]
     Indication: DUODENAL ULCER
     Dosage: 300 MG, SINGLE
     Route: 048
  2. RANITIDINE HYDROCHLORIDE 75 MG 156 [Suspect]
     Dosage: 600 MG, SINGLE
     Route: 048
  3. RANITIDINE HYDROCHLORIDE 75 MG 156 [Suspect]
     Dosage: 3 MG, SINGLE
     Route: 048
  4. RANITIDINE HYDROCHLORIDE 75 MG 156 [Suspect]
     Dosage: 30 MG, SINGLE
     Route: 048
  5. RANITIDINE HYDROCHLORIDE 75 MG 156 [Suspect]
     Dosage: 150 MG, SINGLE
     Route: 048

REACTIONS (11)
  - ABDOMINAL PAIN [None]
  - ANAPHYLACTIC REACTION [None]
  - ANGIOEDEMA [None]
  - BRONCHIAL OBSTRUCTION [None]
  - CONJUNCTIVITIS [None]
  - DYSPNOEA [None]
  - FLUSHING [None]
  - HYPOTENSION [None]
  - LOSS OF CONSCIOUSNESS [None]
  - PRURITUS [None]
  - URTICARIA [None]
